FAERS Safety Report 6592685-9 (Version None)
Quarter: 2010Q1

REPORT INFORMATION
  Report Type: 
  Country: None (occurrence: None)
  Receive Date: 20100222
  Receipt Date: 20100216
  Transmission Date: 20100710
  Serious: Yes (Hospitalization)
  Sender: FDA-Public Use
  Company Number: US-BIOGENIDEC-2010BI004242

PATIENT
  Age: 43 Year
  Sex: Male

DRUGS (2)
  1. AVONEX [Suspect]
     Indication: MULTIPLE SCLEROSIS
     Route: 030
     Dates: start: 20010712, end: 20060721
  2. AVONEX [Suspect]
     Route: 030
     Dates: start: 20080925

REACTIONS (4)
  - DEHYDRATION [None]
  - HEAT EXHAUSTION [None]
  - MULTIPLE SCLEROSIS [None]
  - SEPSIS [None]
